FAERS Safety Report 5482440-5 (Version None)
Quarter: 2007Q4

REPORT INFORMATION
  Report Type: 
  Country: None (occurrence: None)
  Receive Date: 20071011
  Receipt Date: 20071010
  Transmission Date: 20080405
  Serious: Yes (Hospitalization)
  Sender: FDA-Public Use
  Company Number: A0661212A

PATIENT
  Age: 37 Year
  Sex: Male

DRUGS (3)
  1. NICODERM CQ [Suspect]
     Indication: DRUG WITHDRAWAL MAINTENANCE THERAPY
     Route: 062
     Dates: start: 20070515, end: 20070629
  2. NICOTINE [Suspect]
     Indication: DRUG WITHDRAWAL MAINTENANCE THERAPY
     Route: 062
  3. PREDNISONE [Suspect]

REACTIONS (9)
  - APPLICATION SITE ERYTHEMA [None]
  - HAEMATOCHEZIA [None]
  - IDIOPATHIC THROMBOCYTOPENIC PURPURA [None]
  - INCREASED TENDENCY TO BRUISE [None]
  - JOINT SWELLING [None]
  - PETECHIAE [None]
  - PLATELET COUNT DECREASED [None]
  - RASH [None]
  - RASH MACULAR [None]
